FAERS Safety Report 5910025-2 (Version None)
Quarter: 2008Q4

REPORT INFORMATION
  Report Type: 
  Country: None (occurrence: None)
  Receive Date: 20081007
  Receipt Date: 20080409
  Transmission Date: 20090506
  Serious: Yes (Other)
  Sender: FDA-Public Use
  Company Number: US-ASTRAZENECA-2006UW06714

PATIENT
  Age: 50 Year
  Sex: Female
  Weight: 95.3 kg

DRUGS (12)
  1. ARIMIDEX [Suspect]
     Indication: BREAST CANCER
     Route: 048
     Dates: start: 20040101, end: 20060201
  2. ARIMIDEX [Suspect]
     Route: 048
     Dates: start: 20060301
  3. AROMASIN [Suspect]
     Dates: start: 20060201
  4. FOSAMAX [Concomitant]
  5. ATENOLOL [Concomitant]
  6. CHOLORCHON [Concomitant]
  7. BENICAR [Concomitant]
  8. ALPRAZOLAM [Concomitant]
  9. WARFARIN SODIUM [Concomitant]
  10. CALCIUM [Concomitant]
  11. VITAMIN D [Concomitant]
  12. BONIVA [Concomitant]

REACTIONS (4)
  - ARTHRALGIA [None]
  - BONE PAIN [None]
  - HOT FLUSH [None]
  - OSTEOPENIA [None]
